FAERS Safety Report 18646318 (Version 1)
Quarter: 2020Q4

REPORT INFORMATION
  Report Type: Spontaneous
  Country: US (occurrence: US)
  Receive Date: 20201222
  Receipt Date: 20201222
  Transmission Date: 20210114
  Serious: Yes (Other)
  Sender: FDA-Public Use
  Company Number: US-GILEAD-2020-0509584

PATIENT
  Age: 63 Year
  Sex: Female

DRUGS (12)
  1. CILOXAN [Concomitant]
     Active Substance: CIPROFLOXACIN HYDROCHLORIDE
  2. FLONASE [Concomitant]
     Active Substance: FLUTICASONE PROPIONATE
  3. METOPROLOL. [Concomitant]
     Active Substance: METOPROLOL
  4. ASPIRIN [ACETYLSALICYLIC ACID] [Concomitant]
     Active Substance: ASPIRIN
  5. SOFOSBUVIR;VELPATASVIR [Suspect]
     Active Substance: SOFOSBUVIR\VELPATASVIR
     Indication: CHRONIC HEPATITIS C
     Dosage: 1 DOSAGE FORM, QD
     Route: 048
     Dates: start: 20201123
  6. ACULAR [Concomitant]
     Active Substance: KETOROLAC TROMETHAMINE
  7. CLONIDINE. [Concomitant]
     Active Substance: CLONIDINE
  8. PRED FORTE [Concomitant]
     Active Substance: PREDNISOLONE ACETATE
  9. PREDNISOLONE. [Concomitant]
     Active Substance: PREDNISOLONE
  10. CARVEDILOL. [Concomitant]
     Active Substance: CARVEDILOL
  11. XANAX [Concomitant]
     Active Substance: ALPRAZOLAM
  12. LISINOPRIL. [Concomitant]
     Active Substance: LISINOPRIL

REACTIONS (3)
  - Dizziness [Unknown]
  - Cataract [Unknown]
  - Headache [Unknown]

NARRATIVE: CASE EVENT DATE: 20201214
